FAERS Safety Report 7671789-3 (Version None)
Quarter: 2011Q3

REPORT INFORMATION
  Report Type: 
  Country: None (occurrence: None)
  Receive Date: 20110809
  Receipt Date: 20110727
  Transmission Date: 20111222
  Serious: Yes (Other)
  Sender: FDA-Public Use
  Company Number: US-ROCHE-765356

PATIENT
  Sex: Male
  Weight: 87.5 kg

DRUGS (5)
  1. SOTRET [Suspect]
     Indication: ACNE
     Route: 065
     Dates: start: 20030401
  2. AMNESTEEM [Suspect]
     Indication: ACNE
     Route: 065
     Dates: start: 20030201, end: 20030301
  3. ACCUTANE [Suspect]
     Indication: ACNE
     Route: 065
     Dates: start: 19991101, end: 20000601
  4. ACCUTANE [Suspect]
     Route: 065
     Dates: start: 20021101, end: 20030101
  5. DEXEDRINE [Concomitant]

REACTIONS (5)
  - IRRITABLE BOWEL SYNDROME [None]
  - CONSTIPATION [None]
  - DIARRHOEA [None]
  - INFLAMMATORY BOWEL DISEASE [None]
  - ABDOMINAL PAIN [None]
